FAERS Safety Report 9479636 (Version 1)
Quarter: 2013Q3

REPORT INFORMATION
  Report Type: Spontaneous
  Country: FR (occurrence: FR)
  Receive Date: 20130827
  Receipt Date: 20130827
  Transmission Date: 20140515
  Serious: Yes (Hospitalization)
  Sender: FDA-Public Use
  Company Number: PHHY2013FR091403

PATIENT
  Age: 28 Year
  Sex: Female

DRUGS (16)
  1. SANDIMMUNE NEORAL [Suspect]
     Indication: PROPHYLAXIS AGAINST GRAFT VERSUS HOST DISEASE
     Dosage: 3 MG/KG
     Route: 048
     Dates: start: 20130523, end: 20130614
  2. HYDREA [Concomitant]
     Dosage: 2 DF, UNK
  3. SPECIAFOLDINE [Concomitant]
     Dosage: 5 MG, QD
  4. ORACILLINE [Concomitant]
  5. MICROVAL [Concomitant]
  6. ATARAX [Concomitant]
  7. LOVENOX [Concomitant]
  8. KARDEGIC [Concomitant]
  9. INEXIUM [Concomitant]
  10. DAFALGAN [Concomitant]
  11. ERYTHROCYTES [Concomitant]
  12. CIDOFOVIR [Concomitant]
     Indication: CYSTITIS HAEMORRHAGIC
     Dates: start: 20130510, end: 20130612
  13. CYMEVAN [Concomitant]
     Indication: CYTOMEGALOVIRUS INFECTION
     Dates: start: 20130510, end: 20130612
  14. ROVALCYTE [Concomitant]
     Indication: CYTOMEGALOVIRUS INFECTION
     Dates: start: 20130510, end: 20130612
  15. TAZOCILLINE [Concomitant]
     Indication: SEPSIS
     Dates: start: 20130510, end: 20130612
  16. METHYLPREDNISOLONE [Concomitant]
     Dosage: 60 MG, QD
     Route: 042
     Dates: start: 20130612

REACTIONS (6)
  - Cerebral vasoconstriction [Recovering/Resolving]
  - Posterior reversible encephalopathy syndrome [Recovering/Resolving]
  - Epilepsy [Recovered/Resolved]
  - Abnormal behaviour [Recovering/Resolving]
  - Headache [Recovering/Resolving]
  - Dyskinesia [Recovered/Resolved]
